FAERS Safety Report 25682151 (Version 1)
Quarter: 2025Q3

REPORT INFORMATION
  Report Type: Spontaneous
  Country: US (occurrence: US)
  Receive Date: 20250814
  Receipt Date: 20250814
  Transmission Date: 20251021
  Serious: No
  Sender: IPSEN BIOPHARMACEUTICALS, INC.
  Company Number: US-IPSEN Group, Research and Development-2025-19196

PATIENT
  Sex: Male

DRUGS (2)
  1. SOMATULINE DEPOT [Suspect]
     Active Substance: LANREOTIDE ACETATE
     Indication: Carcinoid tumour
     Dosage: 120MG/0.5ML, UNDER THE SKIN (SUBCUTANEOUS INJECTION) EVERY 4 WEEKS
     Dates: start: 20250429
  2. TAZVERIK [Suspect]
     Active Substance: TAZEMETOSTAT HYDROBROMIDE
     Indication: Follicular lymphoma stage III

REACTIONS (2)
  - Diarrhoea [Unknown]
  - Fatigue [Unknown]
